FAERS Safety Report 4392846-3 (Version None)
Quarter: 2004Q3

REPORT INFORMATION
  Report Type: 
  Country: None (occurrence: None)
  Receive Date: 20040702
  Receipt Date: 20040308
  Transmission Date: 20050211
  Serious: Yes (Other)
  Sender: FDA-Public Use
  Company Number: 2004UW05287

PATIENT
  Age: 64 Year
  Sex: Male

DRUGS (1)
  1. CRESTOR [Suspect]
     Dosage: 10 MG QD PO
     Route: 048

REACTIONS (6)
  - BLOOD CREATININE INCREASED [None]
  - CHROMATURIA [None]
  - HYPERKALAEMIA [None]
  - HYPERTENSION [None]
  - OEDEMA [None]
  - PAIN IN EXTREMITY [None]
